FAERS Safety Report 10630011 (Version 1)
Quarter: 2014Q4

REPORT INFORMATION
  Report Type: Spontaneous
  Country: PR (occurrence: PR)
  Receive Date: 20141205
  Receipt Date: 20141205
  Transmission Date: 20150529
  Serious: No
  Sender: FDA-Public Use
  Company Number: PR-BRISTOL-MYERS SQUIBB COMPANY-21232541

PATIENT
  Age: 66 Year
  Sex: Female
  Weight: 79.36 kg

DRUGS (3)
  1. VASOTEC [Concomitant]
     Active Substance: ENALAPRIL MALEATE
  2. SPRYCEL [Suspect]
     Active Substance: DASATINIB
     Dosage: SPRYCEL 70MG
     Route: 048
  3. DULERA [Concomitant]
     Active Substance: FORMOTEROL FUMARATE DIHYDRATE\MOMETASONE FUROATE

REACTIONS (1)
  - Cough [Unknown]
